FAERS Safety Report 20466632 (Version 3)
Quarter: 2022Q1

REPORT INFORMATION
  Report Type: Report from Study
  Country: KR (occurrence: KR)
  Receive Date: 20220213
  Receipt Date: 20220307
  Transmission Date: 20220423
  Serious: Yes (Hospitalization, Other)
  Sender: FDA-Public Use
  Company Number: KR-CELLTRION INC.-2022KR001358

PATIENT

DRUGS (10)
  1. INFLIXIMAB [Suspect]
     Active Substance: INFLIXIMAB
     Indication: Crohn^s disease
     Dosage: 120 MG
     Route: 058
     Dates: start: 20220204
  2. PENIRAMIN [Concomitant]
     Indication: Myalgia
     Dosage: 4 MILLIGRAM, SINGLE DOSE (FREQUENCY: 1)
     Route: 042
     Dates: start: 20220204
  3. PENIRAMIN [Concomitant]
     Indication: Chills
  4. DEXTROSE\SODIUM CHLORIDE [Concomitant]
     Active Substance: DEXTROSE\SODIUM CHLORIDE
     Indication: Myalgia
     Dosage: 1 PACK, SINGLE DOSE (FREQUENCY: 2)
     Route: 042
     Dates: start: 20220204
  5. DEXTROSE\SODIUM CHLORIDE [Concomitant]
     Active Substance: DEXTROSE\SODIUM CHLORIDE
     Indication: Chills
  6. PROPACETAMOL HCL [Concomitant]
     Indication: Pyrexia
     Dosage: 2 G, SINGLE DOSE (FREQUENCY: 1)
     Route: 042
     Dates: start: 20220204, end: 20220205
  7. ACETAMINOPHEN [Concomitant]
     Active Substance: ACETAMINOPHEN
     Indication: Pyrexia
     Dosage: 1 TAB, SINGLE DOSE (FREQUENCY: 1)
     Route: 048
     Dates: start: 20220206, end: 20220208
  8. CEFTRIAXONE [Concomitant]
     Active Substance: CEFTRIAXONE
     Indication: Pyrexia
     Dosage: 2 GRAM, SINGLE DOSE (FREQUENCY: 1)
     Route: 042
     Dates: start: 20220205, end: 20220207
  9. CIPROFLOXACIN [Concomitant]
     Active Substance: CIPROFLOXACIN
     Indication: Pyrexia
     Dosage: 1 PACK, SINGLE DOSE (FREQUENCY: 2)
     Route: 042
     Dates: start: 20220207, end: 20220208
  10. KETOROLAC [Concomitant]
     Active Substance: KETOROLAC TROMETHAMINE
     Indication: Pyrexia
     Dosage: 1 MG, SINGLE DOSE (FREQUENCY: 1)
     Route: 042

REACTIONS (1)
  - Colitis [Recovered/Resolved]

NARRATIVE: CASE EVENT DATE: 20220204
